FAERS Safety Report 8490159-1 (Version None)
Quarter: 2012Q3

REPORT INFORMATION
  Report Type: 
  Country: None (occurrence: None)
  Receive Date: 20120705
  Receipt Date: 20120626
  Transmission Date: 20120928
  Serious: Yes (Hospitalization, Other)
  Sender: FDA-Public Use
  Company Number: US-ASTRAZENECA-2012SE43016

PATIENT
  Age: 58 Year
  Sex: Male
  Weight: 77.1 kg

DRUGS (9)
  1. CLONAZEPAM [Concomitant]
     Dates: start: 20040101
  2. SEROQUEL XR [Suspect]
     Route: 048
     Dates: start: 20100101, end: 20111201
  3. SEROQUEL XR [Suspect]
     Route: 048
     Dates: start: 20120101
  4. SEROQUEL XR [Suspect]
     Indication: BIPOLAR DISORDER
     Route: 048
     Dates: start: 20080101
  5. SEROQUEL XR [Suspect]
     Route: 048
  6. SEROQUEL XR [Suspect]
     Route: 048
     Dates: start: 20111201, end: 20120101
  7. LITHIUM CARBONATE [Suspect]
     Route: 065
  8. LEVOTHYROXINE SODIUM [Concomitant]
  9. ZOLPIDEM TARTRATE [Concomitant]
     Indication: INSOMNIA

REACTIONS (8)
  - GLAUCOMA [None]
  - BLOOD URINE PRESENT [None]
  - INTENTIONAL DRUG MISUSE [None]
  - CATARACT [None]
  - PNEUMONIA [None]
  - SOCIAL PHOBIA [None]
  - PLEURAL EFFUSION [None]
  - INSOMNIA [None]
